FAERS Safety Report 6271871-1 (Version None)
Quarter: 2009Q3

REPORT INFORMATION
  Report Type: 
  Country: None (occurrence: None)
  Receive Date: 20090717
  Receipt Date: 20090709
  Transmission Date: 20100115
  Serious: Yes (Hospitalization, Other)
  Sender: FDA-Public Use
  Company Number: PHHO2009US08610

PATIENT
  Sex: Male
  Weight: 95 kg

DRUGS (4)
  1. RAD 666 RAD+TAB+CMAS [Suspect]
     Indication: GLIOBLASTOMA MULTIFORME
     Dosage: 10 MG / DAY
     Route: 048
     Dates: start: 20090223, end: 20090707
  2. KEPPRA [Concomitant]
     Indication: CONVULSION
     Dosage: UNK
  3. ZOFRAN [Concomitant]
     Indication: NAUSEA
     Dosage: UNK
  4. SIMVASTATIN [Concomitant]
     Indication: HYPERCHOLESTEROLAEMIA
     Dosage: UNK

REACTIONS (8)
  - BLOOD CHOLESTEROL INCREASED [None]
  - BLOOD TRIGLYCERIDES INCREASED [None]
  - CEREBRAL INFARCTION [None]
  - CEREBROVASCULAR ACCIDENT [None]
  - DIZZINESS [None]
  - DYSARTHRIA [None]
  - FACIAL PARESIS [None]
  - MUSCULAR WEAKNESS [None]
